FAERS Safety Report 7275859 (Version 5)
Quarter: 2012Q4

REPORT INFORMATION
  Report Type: Report from Study
  Country: US (occurrence: US)
  Receive Date: 20100211
  Receipt Date: 20121226
  Transmission Date: 20130627
  Serious: Yes (Other)
  Sender: FDA-Public Use
  Company Number: US-ROCHE-683820

PATIENT
  Age: 70 None
  Sex: Female
  Weight: 61.2 kg

DRUGS (3)
  1. CAPECITABINE [Suspect]
     Indication: COLORECTAL CANCER
     Dosage: ROUTE: BY MOUTH
     Route: 048
     Dates: start: 20100121, end: 20100121
  2. CAPECITABINE [Suspect]
     Dosage: ONE WEEK OFF AND ONE WEEK ON
     Route: 048
  3. OXALIPLATIN [Suspect]
     Indication: COLORECTAL CANCER
     Dosage: FORM: INFUSION
     Route: 042
     Dates: start: 20100121, end: 20100121

REACTIONS (13)
  - Blood pressure increased [Recovered/Resolved]
  - Feeling abnormal [Recovered/Resolved]
  - Paraesthesia [Recovered/Resolved]
  - Abasia [Recovered/Resolved]
  - Loss of consciousness [Unknown]
  - Vomiting [Recovered/Resolved]
  - Diarrhoea [Recovering/Resolving]
  - Oral mucosal blistering [Recovered/Resolved]
  - Abdominal pain [Recovering/Resolving]
  - Erythema [Unknown]
  - Fluid retention [Unknown]
  - Weight increased [Unknown]
  - Memory impairment [Unknown]
